FAERS Safety Report 21627838 (Version 5)
Quarter: 2024Q2

REPORT INFORMATION
  Report Type: Spontaneous
  Country: US (occurrence: US)
  Receive Date: 20221122
  Receipt Date: 20240424
  Transmission Date: 20240716
  Serious: Yes (Other)
  Sender: FDA-Public Use
  Company Number: US-PFIZER INC-202200411942

PATIENT
  Age: 48 Year
  Sex: Female
  Weight: 61.23 kg

DRUGS (1)
  1. ESTRING [Suspect]
     Active Substance: ESTRADIOL
     Indication: Menopause
     Dosage: UNK, EVERY 3 MONTHS

REACTIONS (1)
  - Drug dependence [Unknown]
